FAERS Safety Report 15291376 (Version 1)
Quarter: 2018Q3

REPORT INFORMATION
  Report Type: Spontaneous
  Country: US (occurrence: US)
  Receive Date: 20180805
  Receipt Date: 20180805
  Transmission Date: 20181010
  Serious: Yes (Disabling, Other)
  Sender: FDA-Public Use
  Company Number: None

PATIENT
  Age: 44 Year
  Sex: Male
  Weight: 112.5 kg

DRUGS (2)
  1. TOPIRAMATE 50MG [Suspect]
     Active Substance: TOPIRAMATE
     Indication: PROPHYLAXIS
     Dosage: ?          QUANTITY:0.5 TABLET(S);?
     Route: 048
     Dates: start: 20180719, end: 20180728
  2. TOPIRAMATE 50MG [Suspect]
     Active Substance: TOPIRAMATE
     Indication: HEADACHE
     Dosage: ?          QUANTITY:0.5 TABLET(S);?
     Route: 048
     Dates: start: 20180719, end: 20180728

REACTIONS (11)
  - Hypersensitivity [None]
  - Anxiety [None]
  - Abnormal behaviour [None]
  - Crying [None]
  - Irritability [None]
  - Sensory disturbance [None]
  - Panic reaction [None]
  - Homicidal ideation [None]
  - Hallucination, visual [None]
  - Visual impairment [None]
  - Aphasia [None]

NARRATIVE: CASE EVENT DATE: 20180723
